FAERS Safety Report 8131061-4 (Version None)
Quarter: 2012Q1

REPORT INFORMATION
  Report Type: 
  Country: None (occurrence: None)
  Receive Date: 20120209
  Receipt Date: 20120209
  Transmission Date: 20120608
  Serious: Yes (Life-Threatening, Disabling, Other)
  Sender: FDA-Public Use
  Company Number: None

PATIENT
  Sex: Male
  Weight: 63.5036 kg

DRUGS (1)
  1. METHOTREXATE [Suspect]
     Dosage: 10 ML 1 WK INGEST
     Dates: start: 20101001, end: 20110801

REACTIONS (6)
  - AMNESIA [None]
  - ACTIVITIES OF DAILY LIVING IMPAIRED [None]
  - PAIN [None]
  - PRODUCT CONTAMINATION PHYSICAL [None]
  - SKIN ULCER HAEMORRHAGE [None]
  - VISUAL ACUITY REDUCED [None]
